FAERS Safety Report 9012850 (Version 2)
Quarter: 2013Q3

REPORT INFORMATION
  Report Type: Report from Study
  Country: US (occurrence: US)
  Receive Date: 20130114
  Receipt Date: 20130830
  Transmission Date: 20140515
  Serious: Yes (Hospitalization, Other)
  Sender: FDA-Public Use
  Company Number: US-BMSGILMSD-2013-0067672

PATIENT
  Age: 40 Year
  Sex: Male

DRUGS (4)
  1. EFAVIRENZ/EMTRICITABINE/TENOFOVIR DISOPROXIL FUMARATE [Suspect]
     Indication: HIV INFECTION
     Dosage: UNK, QD
     Route: 048
     Dates: start: 2009, end: 20121211
  2. V501 [Suspect]
     Indication: PROPHYLAXIS
     Dosage: 0.5 ML, ONCE
     Route: 030
     Dates: start: 20120420, end: 20120420
  3. V501 [Suspect]
     Dosage: 0.5 ML, ONCE
     Dates: start: 20120615, end: 20120615
  4. V501 [Suspect]
     Dosage: 0.5 ML, ONCE
     Dates: start: 20121010, end: 20121010

REACTIONS (2)
  - Renal failure acute [Recovered/Resolved]
  - Orchitis [Recovered/Resolved]
